FAERS Safety Report 8113685-3 (Version None)
Quarter: 2012Q1

REPORT INFORMATION
  Report Type: 
  Country: None (occurrence: None)
  Receive Date: 20120203
  Receipt Date: 20120130
  Transmission Date: 20120608
  Serious: Yes (Death)
  Sender: FDA-Public Use
  Company Number: AT-JNJFOC-20120113304

PATIENT
  Age: 48 Year
  Sex: Female
  Weight: 84 kg

DRUGS (22)
  1. SERDOLECT [Suspect]
     Route: 065
  2. RISPERDAL [Suspect]
     Indication: PRODUCT USED FOR UNKNOWN INDICATION
     Route: 065
  3. GEWACALM [Suspect]
     Indication: PRODUCT USED FOR UNKNOWN INDICATION
     Route: 065
  4. SOLIAN [Suspect]
     Route: 065
  5. NOZINAN [Suspect]
     Route: 065
  6. SERACTIL [Suspect]
     Route: 065
  7. ELOMEL [Suspect]
     Indication: DYSPHAGIA
     Route: 065
     Dates: start: 20110526, end: 20110526
  8. ELOMEL [Suspect]
     Route: 065
  9. SERACTIL [Suspect]
     Indication: NECK PAIN
     Route: 065
     Dates: start: 20110527, end: 20110527
  10. NOVALGIN [Suspect]
     Route: 065
  11. AN UNKNOWN MEDICATION [Suspect]
     Indication: PRODUCT USED FOR UNKNOWN INDICATION
     Route: 065
  12. SERDOLECT [Suspect]
     Indication: PRODUCT USED FOR UNKNOWN INDICATION
     Route: 065
     Dates: start: 20100601
  13. SERACTIL [Suspect]
     Indication: HEADACHE
     Route: 065
  14. SERACTIL [Suspect]
     Route: 065
     Dates: start: 20110527, end: 20110527
  15. RISPERDAL [Suspect]
     Route: 065
     Dates: start: 20110526
  16. GEWACALM [Suspect]
     Route: 065
     Dates: start: 20100101
  17. NOZINAN [Suspect]
     Indication: PRODUCT USED FOR UNKNOWN INDICATION
     Route: 065
     Dates: start: 20100101, end: 20110521
  18. BERODUAL [Suspect]
     Indication: PRODUCT USED FOR UNKNOWN INDICATION
     Route: 065
  19. NOVALGIN [Suspect]
     Indication: PRODUCT USED FOR UNKNOWN INDICATION
     Route: 065
     Dates: start: 20110525, end: 20110525
  20. BERODUAL [Suspect]
     Dosage: 2 PUFFS
     Route: 065
     Dates: start: 20100101
  21. SOLIAN [Suspect]
     Indication: PRODUCT USED FOR UNKNOWN INDICATION
     Route: 065
     Dates: start: 20110201
  22. AN UNKNOWN MEDICATION [Suspect]
     Route: 065
     Dates: start: 20110526

REACTIONS (1)
  - RIGHT VENTRICULAR FAILURE [None]
